FAERS Safety Report 6522229-9 (Version None)
Quarter: 2009Q4

REPORT INFORMATION
  Report Type: 
  Country: None (occurrence: None)
  Receive Date: 20091229
  Receipt Date: 20091229
  Transmission Date: 20100525
  Serious: Yes (Life-Threatening, Hospitalization)
  Sender: FDA-Public Use
  Company Number: None

PATIENT
  Age: 82 Year
  Sex: Female
  Weight: 89 kg

DRUGS (11)
  1. WARFARIN SODIUM [Suspect]
     Indication: ATRIAL FIBRILLATION
     Dosage: 4MG PO DAILY AT HOME
     Route: 048
  2. LISINOPRIL [Concomitant]
  3. RANITIDINE [Concomitant]
  4. SIMVASTATIN [Concomitant]
  5. BISACODYL [Concomitant]
  6. DILTIAZEM [Concomitant]
  7. METOPROLOL TARTRATE [Concomitant]
  8. APAP TAB [Concomitant]
  9. FUROSEMIDE [Concomitant]
  10. FLUTICASONE [Concomitant]
  11. ALBUTEROL [Concomitant]

REACTIONS (3)
  - FATIGUE [None]
  - GASTROINTESTINAL HAEMORRHAGE [None]
  - HAEMOGLOBIN DECREASED [None]
